FAERS Safety Report 5592374-3 (Version None)
Quarter: 2008Q1

REPORT INFORMATION
  Report Type: 
  Country: None (occurrence: None)
  Receive Date: 20080111
  Receipt Date: 20080103
  Transmission Date: 20080703
  Serious: Yes (Other)
  Sender: FDA-Public Use
  Company Number: 2008-00015

PATIENT
  Age: 1 Year
  Sex: Female

DRUGS (2)
  1. PREDNISONE TAB [Suspect]
     Indication: IMMUNOSUPPRESSANT DRUG THERAPY
     Dates: start: 20070101, end: 20070101
  2. TACROLIMUS [Suspect]
     Indication: IMMUNOSUPPRESSANT DRUG THERAPY
     Dates: start: 20070101, end: 20070101

REACTIONS (2)
  - DIFFUSE LARGE B-CELL LYMPHOMA STAGE IV [None]
  - LYMPHOPROLIFERATIVE DISORDER [None]
